FAERS Safety Report 4300269-8 (Version None)
Quarter: 2004Q1

REPORT INFORMATION
  Report Type: 
  Country: None (occurrence: None)
  Receive Date: 20040218
  Receipt Date: 20040204
  Transmission Date: 20041129
  Serious: Yes (Death)
  Sender: FDA-Public Use
  Company Number: USA040258514

PATIENT
  Age: 57 Year
  Sex: Male

DRUGS (8)
  1. PROZAC [Suspect]
     Indication: DEPRESSION
     Dosage: 20 MG/DAY
  2. XANAX [Concomitant]
  3. HYDROCODONE [Concomitant]
  4. ACCUPRIL [Concomitant]
  5. COUMADIN [Concomitant]
  6. LANOXIN [Concomitant]
  7. QUINIDINE HCL [Concomitant]
  8. LEXAPRO [Concomitant]

REACTIONS (4)
  - AKATHISIA [None]
  - ASPHYXIA [None]
  - COMPLETED SUICIDE [None]
  - DRUG INTOLERANCE [None]
